FAERS Safety Report 10529005 (Version 3)
Quarter: 2014Q4

REPORT INFORMATION
  Report Type: Spontaneous
  Country: US (occurrence: US)
  Receive Date: 20141020
  Receipt Date: 20141125
  Transmission Date: 20150528
  Serious: Yes (Other)
  Sender: FDA-Public Use
  Company Number: US-PFIZER INC-2014287315

PATIENT
  Age: 62 Year
  Sex: Female
  Weight: 76 kg

DRUGS (5)
  1. LIPITOR [Suspect]
     Active Substance: ATORVASTATIN CALCIUM
     Indication: BLOOD CHOLESTEROL INCREASED
     Dosage: 40 MG, 1X/DAY
     Route: 048
     Dates: start: 200303, end: 200711
  2. FISH OIL [Concomitant]
     Active Substance: FISH OIL
     Indication: CARDIOVASCULAR EVENT PROPHYLAXIS
     Dosage: 1200 MG, DAILY
     Dates: start: 2004
  3. LIPITOR [Suspect]
     Active Substance: ATORVASTATIN CALCIUM
     Indication: BLOOD TRIGLYCERIDES INCREASED
  4. GLUCOSAMINE [Concomitant]
     Active Substance: GLUCOSAMINE
     Indication: PROPHYLAXIS
     Dosage: 1000 MG, DAILY
     Dates: start: 1994
  5. ASPIRIN. [Concomitant]
     Active Substance: ASPIRIN
     Indication: CARDIOVASCULAR EVENT PROPHYLAXIS
     Dosage: 81 MG, 1X/DAY
     Dates: start: 1992

REACTIONS (1)
  - Type 2 diabetes mellitus [Not Recovered/Not Resolved]

NARRATIVE: CASE EVENT DATE: 20060118
